FAERS Safety Report 9331902 (Version 2)
Quarter: 2014Q1

REPORT INFORMATION
  Report Type: Spontaneous
  Country: BG (occurrence: BG)
  Receive Date: 20130605
  Receipt Date: 20140305
  Transmission Date: 20141002
  Serious: Yes (Other)
  Sender: FDA-Public Use
  Company Number: BG-UCBSA-087113

PATIENT
  Sex: Female

DRUGS (3)
  1. CIMZIA [Suspect]
     Indication: RHEUMATOID ARTHRITIS
     Route: 058
     Dates: start: 201212
  2. RESOCHIN [Concomitant]
     Indication: RHEUMATOID ARTHRITIS
  3. SALAZOPIRIN [Concomitant]
     Indication: RHEUMATOID ARTHRITIS

REACTIONS (1)
  - Tuberculosis [Unknown]
